FAERS Safety Report 20188654 (Version 2)
Quarter: 2021Q4

REPORT INFORMATION
  Report Type: Report from Study
  Country: US (occurrence: US)
  Receive Date: 20211215
  Receipt Date: 20211222
  Transmission Date: 20220303
  Serious: No
  Sender: FDA-Public Use
  Company Number: US-NOVARTISTESTPH-NVSC2021US286029

PATIENT
  Age: 32 Year
  Sex: Female

DRUGS (1)
  1. KESIMPTA [Suspect]
     Active Substance: OFATUMUMAB
     Indication: Relapsing multiple sclerosis
     Route: 058
     Dates: start: 20210827

REACTIONS (3)
  - Tremor [Recovering/Resolving]
  - Slow speech [Recovering/Resolving]
  - Tachycardia [Unknown]

NARRATIVE: CASE EVENT DATE: 20211010
